FAERS Safety Report 12178500 (Version 1)
Quarter: 2016Q1

REPORT INFORMATION
  Report Type: Spontaneous
  Country: US (occurrence: US)
  Receive Date: 20160315
  Receipt Date: 20160315
  Transmission Date: 20160526
  Serious: Yes (Other)
  Sender: FDA-Public Use
  Company Number: US-BAYER-2016-043451

PATIENT
  Age: 56 Year
  Sex: Male

DRUGS (1)
  1. MOXIFLOXACIN ORAL [Suspect]
     Active Substance: MOXIFLOXACIN
     Indication: SINUSITIS
     Dosage: UNK
     Route: 048

REACTIONS (2)
  - Myocardial infarction [None]
  - Anaphylactic reaction [None]
